FAERS Safety Report 9860787 (Version 1)
Quarter: 2014Q1

REPORT INFORMATION
  Report Type: Spontaneous
  Country: US (occurrence: US)
  Receive Date: 20140202
  Receipt Date: 20140202
  Transmission Date: 20141002
  Serious: No
  Sender: FDA-Public Use
  Company Number: US-ALLERGAN-1301243US

PATIENT
  Sex: Female

DRUGS (6)
  1. BOTOX COSMETIC [Suspect]
     Indication: SKIN WRINKLING
     Dosage: UNK, SINGLE
     Route: 030
     Dates: start: 201210, end: 201210
  2. ATENOLOL [Concomitant]
     Indication: HYPERTENSION
     Dosage: 50 MG, QD
     Route: 048
  3. MAXZIDE [Concomitant]
     Indication: HYPERTENSION
     Dosage: 200 MG, QD
     Route: 048
  4. ACIPHEX [Concomitant]
     Indication: GASTROOESOPHAGEAL REFLUX DISEASE
     Dosage: 20 MG, UNK
     Route: 048
  5. HALCION [Concomitant]
     Indication: SLEEP DISORDER THERAPY
     Dosage: 25 MG, QHS
     Route: 048
  6. MOTRIN [Concomitant]
     Indication: BACK PAIN
     Dosage: 600 MG, UNK
     Route: 048

REACTIONS (5)
  - Dermatitis contact [Unknown]
  - Injection site swelling [Unknown]
  - Injection site erythema [Unknown]
  - Acne [Unknown]
  - Injection site haemorrhage [Unknown]
